FAERS Safety Report 17682446 (Version 1)
Quarter: 2020Q2

REPORT INFORMATION
  Report Type: Spontaneous
  Country: US (occurrence: US)
  Receive Date: 20200418
  Receipt Date: 20200418
  Transmission Date: 20200714
  Serious: No
  Sender: FDA-Public Use
  Company Number: US-PURDUE-USA-2019-0148278

PATIENT
  Sex: Male

DRUGS (2)
  1. HYDROCODONE BITARTRATE/ACETAMINOPHEN [Suspect]
     Active Substance: ACETAMINOPHEN\HYDROCODONE BITARTRATE
     Indication: PAIN IN EXTREMITY
     Dosage: 10/325 MG, 1 TABLET, TID
     Route: 048
  2. LYRICA [Suspect]
     Active Substance: PREGABALIN
     Indication: PAIN IN EXTREMITY
     Dosage: 50 MG, BID
     Route: 048

REACTIONS (3)
  - Hypoaesthesia [Recovered/Resolved]
  - Inadequate analgesia [Not Recovered/Not Resolved]
  - Paraesthesia [Not Recovered/Not Resolved]
